FAERS Safety Report 7527339-5 (Version None)
Quarter: 2011Q2

REPORT INFORMATION
  Report Type: 
  Country: None (occurrence: None)
  Receive Date: 20110607
  Receipt Date: 20110517
  Transmission Date: 20111010
  Serious: Yes (Hospitalization)
  Sender: FDA-Public Use
  Company Number: US-BAYER-2011-008041

PATIENT
  Age: 28 Year
  Sex: Female
  Weight: 147.85 kg

DRUGS (7)
  1. DROSPIRENONE AND ETHINYL ESTRADIOL [Suspect]
     Indication: ACNE
     Dosage: UNK
     Dates: start: 20080101, end: 20090101
  2. IBUPROFEN [Concomitant]
  3. METFORMIN HCL [Concomitant]
  4. AVANDIA [Concomitant]
  5. LIPITOR [Concomitant]
     Indication: HYPERLIPIDAEMIA
  6. NOVOLOG [Concomitant]
  7. YASMIN [Suspect]
     Indication: ACNE
     Dosage: UNK
     Dates: start: 20080101, end: 20090101

REACTIONS (5)
  - CHOLECYSTECTOMY [None]
  - INJURY [None]
  - CHOLECYSTITIS [None]
  - TRANSIENT ISCHAEMIC ATTACK [None]
  - PAIN [None]
